FAERS Safety Report 4934992-9 (Version None)
Quarter: 2006Q1

REPORT INFORMATION
  Report Type: 
  Country: None (occurrence: None)
  Receive Date: 20060127
  Receipt Date: 20051222
  Transmission Date: 20060701
  Serious: Yes (Other)
  Sender: FDA-Public Use
  Company Number: 2005172777

PATIENT
  Age: 42 Year
  Sex: Female
  Weight: 97.5234 kg

DRUGS (3)
  1. LYRICA [Suspect]
     Indication: BACK DISORDER
     Dosage: 150 MG (75 MG, 2 IN 1 D), ORAL
     Route: 048
     Dates: start: 20051222
  2. FLEXERIL [Concomitant]
  3. VICODIN [Concomitant]

REACTIONS (1)
  - MENORRHAGIA [None]
